FAERS Safety Report 8287460-3 (Version None)
Quarter: 2012Q2

REPORT INFORMATION
  Report Type: 
  Country: None (occurrence: None)
  Receive Date: 20120416
  Receipt Date: 20120405
  Transmission Date: 20120825
  Serious: No
  Sender: FDA-Public Use
  Company Number: US-B.I. PHARMACEUTICALS,INC./RIDGEFIELD-2012-BP-06414BP

PATIENT
  Sex: Male

DRUGS (15)
  1. ISOSORBIDE DINITRATE [Concomitant]
     Dosage: 20 MG
     Route: 048
  2. COMPLEX CALCIUM [Concomitant]
     Indication: PROPHYLAXIS
  3. LISINOPRIL [Concomitant]
     Indication: HYPERTENSION
     Dosage: 5 MG
     Route: 048
  4. NORCO [Concomitant]
     Indication: BACK PAIN
  5. VITAMIN E [Concomitant]
     Indication: PROPHYLAXIS
  6. SPIRIVA [Suspect]
     Route: 048
     Dates: start: 20120405, end: 20120405
  7. VITAMIN B COMPLEX CAP [Concomitant]
     Indication: PROPHYLAXIS
  8. KLOR-CON [Concomitant]
     Dosage: 8 MEQ
     Route: 048
  9. METOPROLOL [Concomitant]
     Indication: HYPERTENSION
     Dosage: 50 MG
     Route: 048
  10. SERTRALINE HYDROCHLORIDE [Concomitant]
     Dosage: 25 MG
     Route: 048
  11. PLAVIX [Concomitant]
     Dosage: 75 MG
     Route: 048
  12. SPIRIVA [Suspect]
     Indication: CHRONIC OBSTRUCTIVE PULMONARY DISEASE
     Dosage: 18 MCG
     Route: 055
     Dates: start: 20111001
  13. DILTIAZEM HCL [Concomitant]
     Dosage: 20 MG
     Route: 048
  14. FUROSEMIDE [Concomitant]
     Dosage: 20 MG
     Route: 048
  15. MORPHINE [Concomitant]
     Indication: BACK PAIN
     Dosage: 30 MG
     Route: 048

REACTIONS (2)
  - URINARY RETENTION [None]
  - INCORRECT ROUTE OF DRUG ADMINISTRATION [None]
